FAERS Safety Report 6245854-1 (Version None)
Quarter: 2009Q2

REPORT INFORMATION
  Report Type: 
  Country: None (occurrence: None)
  Receive Date: 20090626
  Receipt Date: 20090615
  Transmission Date: 20091009
  Serious: Yes (Other)
  Sender: FDA-Public Use
  Company Number: GB-RANBAXY-2009RR-25025

PATIENT
  Age: 34 Year
  Sex: Female

DRUGS (2)
  1. AMOXICILLIN [Suspect]
     Indication: LYMPHADENOPATHY
     Dosage: 250 MG, TID
     Route: 048
     Dates: start: 20090220, end: 20090222
  2. TRINOVUM [Concomitant]
     Route: 065

REACTIONS (4)
  - ALOPECIA [None]
  - EYE SWELLING [None]
  - RASH GENERALISED [None]
  - SWELLING FACE [None]
